FAERS Safety Report 6583118-7 (Version None)
Quarter: 2010Q1

REPORT INFORMATION
  Report Type: 
  Country: None (occurrence: None)
  Receive Date: 20100216
  Receipt Date: 20100202
  Transmission Date: 20100710
  Serious: Yes (Hospitalization)
  Sender: FDA-Public Use
  Company Number: AU-ROCHE-683199

PATIENT
  Sex: Male
  Weight: 93.5 kg

DRUGS (9)
  1. METHOXY POLYETHYLENE GLYCOL-EPOETIN BETA [Suspect]
     Dosage: LAST DOSE PRIOR TO SAE 19 JAN 2010. FORM: PREFILLED SYRINGE
     Route: 058
     Dates: start: 20091125
  2. GLICLAZIDE [Concomitant]
  3. PRAZOSIN HYDROCHLORIDE [Concomitant]
  4. AMLODIPINE [Concomitant]
  5. METOPROLOL TARTRATE [Concomitant]
  6. ASPIRIN [Concomitant]
  7. ATORVASTATIN [Concomitant]
  8. CALTRATE [Concomitant]
  9. VITAMINE D [Concomitant]

REACTIONS (1)
  - SKIN ULCER [None]
